FAERS Safety Report 4546833-2 (Version None)
Quarter: 2005Q1

REPORT INFORMATION
  Report Type: 
  Country: None (occurrence: None)
  Receive Date: 20050105
  Receipt Date: 20041223
  Transmission Date: 20050727
  Serious: Yes (Other)
  Sender: FDA-Public Use
  Company Number: 2004112045

PATIENT
  Age: 74 Year
  Sex: Female
  Weight: 90 kg

DRUGS (3)
  1. ZYVOX [Suspect]
     Indication: INFECTION
     Dosage: 1200 MG (600 MG, TWICE DAILY; ORAL
     Route: 048
     Dates: start: 20041202, end: 20041208
  2. METOPROLOL SUCCINATE [Concomitant]
  3. BUDESONIDE [Concomitant]

REACTIONS (4)
  - BLOOD BILIRUBIN INCREASED [None]
  - CONFUSIONAL STATE [None]
  - HALLUCINATION [None]
  - HEPATIC ENZYME INCREASED [None]
